FAERS Safety Report 6887154-2 (Version None)
Quarter: 2010Q3

REPORT INFORMATION
  Report Type: 
  Country: None (occurrence: None)
  Receive Date: 20100730
  Receipt Date: 20100721
  Transmission Date: 20110219
  Serious: Yes (Hospitalization, Other)
  Sender: FDA-Public Use
  Company Number: US-JNJFOC-20100401866

PATIENT
  Age: 5 Decade
  Sex: Female
  Weight: 65.77 kg

DRUGS (3)
  1. ULTRAM [Suspect]
     Indication: PAIN
     Dosage: ONE EVERY 8-10 HOURS
     Route: 048
  2. CYMBALTA [Concomitant]
     Route: 048
  3. PERCOCET [Concomitant]
     Route: 048

REACTIONS (6)
  - ADVERSE EVENT [None]
  - DRUG ABUSE [None]
  - DRUG DEPENDENCE [None]
  - HAEMATOMA [None]
  - OVERDOSE [None]
  - WITHDRAWAL SYNDROME [None]
